FAERS Safety Report 15459619 (Version 2)
Quarter: 2020Q3

REPORT INFORMATION
  Report Type: Spontaneous
  Country: US (occurrence: US)
  Receive Date: 20181003
  Receipt Date: 20200826
  Transmission Date: 20201102
  Serious: No
  Sender: FDA-Public Use
  Company Number: US-SA-2018SA271970

PATIENT

DRUGS (1)
  1. AUBAGIO [Suspect]
     Active Substance: TERIFLUNOMIDE
     Indication: MULTIPLE SCLEROSIS
     Dosage: 14 MG, QD
     Route: 048
     Dates: start: 20180719

REACTIONS (5)
  - Rash [Unknown]
  - Dry skin [Unknown]
  - Renal disorder [Not Recovered/Not Resolved]
  - Pruritus [Unknown]
  - Hypertension [Not Recovered/Not Resolved]
